FAERS Safety Report 9103463 (Version 1)
Quarter: 2013Q1

REPORT INFORMATION
  Report Type: Spontaneous
  Country: US (occurrence: US)
  Receive Date: 20130218
  Receipt Date: 20130218
  Transmission Date: 20140127
  Serious: Yes (Other)
  Sender: FDA-Public Use
  Company Number: PHHY2013US014408

PATIENT
  Sex: 0

DRUGS (3)
  1. ASCRIPTIN BUFFERED MAX STRENGTH CAPLETS [Suspect]
     Indication: ARTHRITIS
     Dosage: 1 DF
     Route: 048
     Dates: start: 1973
  2. FISH OIL [Concomitant]
  3. ASPIRIN ^BAYER^ [Concomitant]
     Indication: ARTHRITIS

REACTIONS (7)
  - Throat cancer [Recovered/Resolved]
  - Coronary artery stenosis [Recovered/Resolved]
  - Head and neck cancer [Recovered/Resolved]
  - Renal artery stenosis [Recovered/Resolved]
  - Fatigue [Not Recovered/Not Resolved]
  - Asthenia [Not Recovered/Not Resolved]
  - Incorrect drug administration duration [Unknown]
